FAERS Safety Report 4749103-2 (Version None)
Quarter: 2005Q3

REPORT INFORMATION
  Report Type: 
  Country: None (occurrence: None)
  Receive Date: 20050819
  Receipt Date: 20050808
  Transmission Date: 20060218
  Serious: Yes (Other)
  Sender: FDA-Public Use
  Company Number: US-ROCHE-413614

PATIENT
  Age: 58 Year
  Sex: Male
  Weight: 54.4 kg

DRUGS (4)
  1. FUZEON [Suspect]
     Route: 058
     Dates: start: 20040615, end: 20050801
  2. 3TC [Concomitant]
     Dates: start: 20040815
  3. DIDANOSINE [Concomitant]
     Dates: start: 20040815
  4. VIRAMUNE [Concomitant]
     Dates: start: 20040815

REACTIONS (3)
  - BLOOD CREATINE PHOSPHOKINASE INCREASED [None]
  - EYELID PTOSIS [None]
  - VITH NERVE PARALYSIS [None]
